FAERS Safety Report 6338788-5 (Version None)
Quarter: 2009Q3

REPORT INFORMATION
  Report Type: 
  Country: None (occurrence: None)
  Receive Date: 20090903
  Receipt Date: 20090828
  Transmission Date: 20100115
  Serious: No
  Sender: FDA-Public Use
  Company Number: US-B.I. PHARMACEUTICALS,INC./RIDGEFIELD-2009-BP-10165BP

PATIENT
  Sex: Female

DRUGS (3)
  1. ZANTAC 150 [Suspect]
  2. XANAX [Concomitant]
     Indication: ANXIETY
     Route: 048
  3. DOXEPIN HCL [Concomitant]
     Indication: BIPOLAR I DISORDER
     Route: 048

REACTIONS (1)
  - DRUG INEFFECTIVE [None]
